FAERS Safety Report 9727999 (Version 1)
Quarter: 2013Q4

REPORT INFORMATION
  Report Type: Spontaneous
  Country: US (occurrence: None)
  Receive Date: 20131203
  Receipt Date: 20131203
  Transmission Date: 20140711
  Serious: Yes (Life-Threatening, Hospitalization, Disabling, Other)
  Sender: FDA-Public Use
  Company Number: None

PATIENT
  Age: 75 Year
  Sex: Female
  Weight: 72.58 kg

DRUGS (1)
  1. CEFPROZIL [Suspect]
     Indication: BRONCHOPNEUMONIA
     Route: 048
     Dates: start: 20130930, end: 20131008

REACTIONS (4)
  - Pain [None]
  - Colitis ischaemic [None]
  - Hypotension [None]
  - Sepsis [None]
